FAERS Safety Report 24044198 (Version 1)
Quarter: 2024Q3

REPORT INFORMATION
  Report Type: Spontaneous
  Country: CN (occurrence: CN)
  Receive Date: 20240703
  Receipt Date: 20240703
  Transmission Date: 20241017
  Serious: Yes (Hospitalization, Other)
  Sender: INGENUS
  Company Number: CN-INGENUS PHARMACEUTICALS, LLC-2024INF000031

PATIENT
  Age: 70 Year
  Sex: Male

DRUGS (7)
  1. ARSENIC TRIOXIDE [Suspect]
     Active Substance: ARSENIC TRIOXIDE
     Indication: Acute promyelocytic leukaemia
     Dosage: 0.16 MG/KG/DAY
     Route: 065
  2. ARSENIC TRIOXIDE [Suspect]
     Active Substance: ARSENIC TRIOXIDE
     Dosage: 9 MG/KG/DAY
     Route: 065
  3. TRETINOIN [Suspect]
     Active Substance: TRETINOIN
     Indication: Acute promyelocytic leukaemia
     Dosage: 25 MILLIGRAM PER CUBIC METRE
     Route: 065
  4. TRETINOIN [Suspect]
     Active Substance: TRETINOIN
     Dosage: 40 MG/DAY
     Route: 065
  5. TRETINOIN [Suspect]
     Active Substance: TRETINOIN
     Dosage: 20 MG/DAY
     Route: 065
  6. TRETINOIN [Suspect]
     Active Substance: TRETINOIN
     Dosage: 10 MILLIGRAM
     Route: 065
  7. TRETINOIN [Suspect]
     Active Substance: TRETINOIN
     Dosage: 30 MG/DAY
     Route: 065

REACTIONS (2)
  - Oedematous pancreatitis [Recovered/Resolved]
  - Differentiation syndrome [Recovered/Resolved]
